FAERS Safety Report 19220685 (Version 1)
Quarter: 2021Q2

REPORT INFORMATION
  Report Type: Spontaneous
  Country: CN (occurrence: CN)
  Receive Date: 20210505
  Receipt Date: 20210505
  Transmission Date: 20210717
  Serious: Yes (Other)
  Sender: FDA-Public Use
  Company Number: CN-PFIZER INC-2021470842

PATIENT
  Age: 15 Month
  Sex: Female
  Weight: 10.5 kg

DRUGS (8)
  1. CYTOSAR [Suspect]
     Active Substance: CYTARABINE
     Dosage: 0.43 G, 2X/DAY
     Route: 041
     Dates: start: 20210302, end: 20210305
  2. SODIUM CHLORIDE. [Suspect]
     Active Substance: SODIUM CHLORIDE
     Indication: ACUTE MYELOID LEUKAEMIA
     Dosage: 2 ML, 1X/DAY
     Route: 037
     Dates: start: 20210302, end: 20210302
  3. DEXAMETHASONE SODIUM PHOSPHATE. [Suspect]
     Active Substance: DEXAMETHASONE SODIUM PHOSPHATE
     Indication: ACUTE MYELOID LEUKAEMIA
     Dosage: 2.5 MG, 1X/DAY
     Route: 037
     Dates: start: 20210302, end: 20210302
  4. CYTOSAR [Suspect]
     Active Substance: CYTARABINE
     Indication: ACUTE MYELOID LEUKAEMIA
     Dosage: 0.025 G, 1X/DAY
     Route: 037
     Dates: start: 20210302, end: 20210302
  5. GLUCOSE [Suspect]
     Active Substance: DEXTROSE
     Indication: ACUTE MYELOID LEUKAEMIA
     Dosage: 250 ML, 2X/DAY
     Route: 041
     Dates: start: 20210302, end: 20210305
  6. METHOTREXATE. [Suspect]
     Active Substance: METHOTREXATE
     Indication: ACUTE MYELOID LEUKAEMIA
     Dosage: 7.5 MG, 1X/DAY
     Route: 037
     Dates: start: 20210302, end: 20210302
  7. GLUCOSE [Suspect]
     Active Substance: DEXTROSE
     Dosage: 250 ML, 1X/DAY
     Route: 041
     Dates: start: 20210302, end: 20210309
  8. HOMOHARRINGTONINE [Suspect]
     Active Substance: OMACETAXINE MEPESUCCINATE
     Indication: ACUTE MYELOID LEUKAEMIA
     Dosage: 1.29 ML, 1X/DAY
     Route: 041
     Dates: start: 20210302, end: 20210309

REACTIONS (1)
  - Myelosuppression [Recovering/Resolving]

NARRATIVE: CASE EVENT DATE: 20210314
